FAERS Safety Report 6041059-8 (Version None)
Quarter: 2009Q1

REPORT INFORMATION
  Report Type: 
  Country: None (occurrence: None)
  Receive Date: 20090116
  Receipt Date: 20080825
  Transmission Date: 20090719
  Serious: Yes (Hospitalization, Other)
  Sender: FDA-Public Use
  Company Number: US-BRISTOL-MYERS SQUIBB COMPANY-14292536

PATIENT
  Age: 13 Year
  Sex: Male

DRUGS (4)
  1. ABILIFY [Suspect]
     Indication: AFFECTIVE DISORDER
     Dosage: RECEIVED 1ST DOSE.
     Route: 048
     Dates: start: 20080805, end: 20080805
  2. ABILIFY [Suspect]
     Indication: MAJOR DEPRESSION
     Dosage: RECEIVED 1ST DOSE.
     Route: 048
     Dates: start: 20080805, end: 20080805
  3. ABILIFY [Suspect]
     Indication: ANGER
     Dosage: RECEIVED 1ST DOSE.
     Route: 048
     Dates: start: 20080805, end: 20080805
  4. ALLEGRA [Concomitant]

REACTIONS (1)
  - ANAPHYLACTIC REACTION [None]
